FAERS Safety Report 7628494-9 (Version None)
Quarter: 2011Q3

REPORT INFORMATION
  Report Type: 
  Country: None (occurrence: None)
  Receive Date: 20110721
  Receipt Date: 20110721
  Transmission Date: 20111222
  Serious: Yes (Hospitalization)
  Sender: FDA-Public Use
  Company Number: None

PATIENT
  Age: 73 Year
  Sex: Male
  Weight: 95.5 kg

DRUGS (1)
  1. CEPHALEXIN [Suspect]
     Dosage: 500 MG BID PO
     Route: 048
     Dates: start: 20110107, end: 20110112

REACTIONS (1)
  - RENAL FAILURE ACUTE [None]
